FAERS Safety Report 21977527 (Version 1)
Quarter: 2023Q1

REPORT INFORMATION
  Report Type: Spontaneous
  Country: US (occurrence: None)
  Receive Date: 20230209
  Receipt Date: 20230209
  Transmission Date: 20230417
  Serious: Yes (Death, Life-Threatening)
  Sender: FDA-Public Use
  Company Number: None

PATIENT
  Age: 60 Year
  Sex: Male
  Weight: 154.4 kg

DRUGS (1)
  1. KIMMTRAK [Suspect]
     Active Substance: TEBENTAFUSP-TEBN
     Indication: Choroid melanoma
     Dosage: 20 UG ONCE INTRAVENOUS
     Route: 042

REACTIONS (13)
  - Abdominal pain upper [None]
  - Chills [None]
  - Headache [None]
  - Nausea [None]
  - Retching [None]
  - Weaning failure [None]
  - Blood potassium increased [None]
  - Blood uric acid increased [None]
  - Blood phosphorus increased [None]
  - Liver function test increased [None]
  - Cytokine release syndrome [None]
  - Renal failure [None]
  - Haemofiltration [None]
